FAERS Safety Report 19392020 (Version 2)
Quarter: 2021Q3

REPORT INFORMATION
  Report Type: Spontaneous
  Country: IN (occurrence: IN)
  Receive Date: 20210608
  Receipt Date: 20210825
  Transmission Date: 20211014
  Serious: Yes (Death)
  Sender: FDA-Public Use
  Company Number: IN-PFIZER INC-2020190803

PATIENT
  Age: 58 Year
  Sex: Female

DRUGS (5)
  1. PALBACE [Suspect]
     Active Substance: PALBOCICLIB
     Dosage: 125 MG, 1X/DAY
     Route: 048
     Dates: end: 20210406
  2. LETROZOLE. [Concomitant]
     Active Substance: LETROZOLE
     Dosage: 1 DF, 1X/DAY
  3. PALBACE [Suspect]
     Active Substance: PALBOCICLIB
     Indication: BREAST CANCER METASTATIC
     Dosage: 100 MG, 1X/DAY
     Route: 048
     Dates: start: 20190531
  4. PALBACE [Suspect]
     Active Substance: PALBOCICLIB
     Dosage: 100 MG, OD 21/28 DAYS
     Route: 048
     Dates: start: 20191019
  5. PALBACE [Suspect]
     Active Substance: PALBOCICLIB
     Dosage: UNK
     Route: 048
     Dates: start: 20191021

REACTIONS (1)
  - Death [Fatal]

NARRATIVE: CASE EVENT DATE: 20210406
